FAERS Safety Report 12553133 (Version 2)
Quarter: 2016Q3

REPORT INFORMATION
  Report Type: Report from Study
  Country: GB (occurrence: GB)
  Receive Date: 20160713
  Receipt Date: 20160819
  Transmission Date: 20161109
  Serious: Yes (Other)
  Sender: FDA-Public Use
  Company Number: GB-JNJFOC-20160516832

PATIENT
  Age: 57 Year
  Sex: Female

DRUGS (9)
  1. TRAMADOL. [Concomitant]
     Active Substance: TRAMADOL
     Indication: PSORIATIC ARTHROPATHY
     Dosage: 60 TABLET
     Route: 065
     Dates: start: 20160222
  2. CICLOSPORIN [Concomitant]
     Active Substance: CYCLOSPORINE
     Indication: PSORIATIC ARTHROPATHY
     Dosage: 50 MG ONCE A DAY AND 60 MG TWICE DAILY
     Route: 065
  3. COCODAMOL [Concomitant]
     Active Substance: ACETAMINOPHEN\CODEINE PHOSPHATE
     Indication: MUSCULOSKELETAL CHEST PAIN
     Dosage: 8 MG/500MG TAB 100 TAB- TAKE 1 OR 2 TAB 4 TIMES /DAY
     Route: 065
  4. AMITRIPTYLINE [Concomitant]
     Active Substance: AMITRIPTYLINE
     Indication: PSORIATIC ARTHROPATHY
     Dosage: 28 TABLETS, ONE TAB AT NIGHT
     Route: 065
     Dates: start: 20160617
  5. SALAZOPYRIN [Concomitant]
     Active Substance: SULFASALAZINE
     Indication: PSORIATIC ARTHROPATHY
     Dosage: 56 TABLETS
     Route: 065
     Dates: start: 20160712
  6. LANSOPRAZOLE. [Concomitant]
     Active Substance: LANSOPRAZOLE
     Indication: PSORIATIC ARTHROPATHY
     Dosage: 28 CAPSULE, 1 OR 2 DAILY
     Route: 065
     Dates: start: 20160617
  7. CALCIPOTRIOL [Concomitant]
     Active Substance: CALCIPOTRIENE
     Indication: PSORIASIS
     Route: 065
  8. ETODOLAC. [Concomitant]
     Active Substance: ETODOLAC
     Indication: PSORIATIC ARTHROPATHY
     Dosage: 28 TABLETS
     Route: 065
     Dates: start: 20160617
  9. STELARA [Suspect]
     Active Substance: USTEKINUMAB
     Indication: PSORIASIS
     Dosage: ON WEEK 4
     Route: 058

REACTIONS (2)
  - Sciatica [Unknown]
  - Localised infection [Unknown]

NARRATIVE: CASE EVENT DATE: 201605
